FAERS Safety Report 6874883-X (Version None)
Quarter: 2010Q3

REPORT INFORMATION
  Report Type: 
  Country: None (occurrence: None)
  Receive Date: 20100727
  Receipt Date: 20100727
  Transmission Date: 20110219
  Serious: Yes (Hospitalization)
  Sender: FDA-Public Use
  Company Number: None

PATIENT
  Age: 6 Year
  Sex: Male
  Weight: 18.1439 kg

DRUGS (2)
  1. CHILDREN'S MOTRIN [Suspect]
     Indication: MULTIPLE ALLERGIES
     Dosage: 4X DAILY, PO
     Route: 048
     Dates: start: 20091221, end: 20091229
  2. CHILDREN'S MOTRIN [Suspect]
     Indication: NASOPHARYNGITIS
     Dosage: 4X DAILY, PO
     Route: 048
     Dates: start: 20091221, end: 20091229

REACTIONS (8)
  - ABASIA [None]
  - CONDITION AGGRAVATED [None]
  - OEDEMA PERIPHERAL [None]
  - PAIN [None]
  - PRODUCT QUALITY ISSUE [None]
  - PYREXIA [None]
  - RASH GENERALISED [None]
  - SWELLING [None]
